FAERS Safety Report 9844882 (Version 1)
Quarter: 2014Q1

REPORT INFORMATION
  Report Type: Spontaneous
  Country: US (occurrence: None)
  Receive Date: 20140122
  Receipt Date: 20140122
  Transmission Date: 20141002
  Serious: Yes (Death)
  Sender: FDA-Public Use
  Company Number: B0960294A

PATIENT
  Age: 53 Year
  Sex: Female

DRUGS (11)
  1. DIAZEPAM [Suspect]
     Route: 048
  2. BUPROPION HYDROCHLORIDE [Suspect]
     Route: 048
  3. LISINOPRIL [Suspect]
     Route: 048
  4. METFORMIN HYDROCHLORIDE (METFORMIN HYDROCHLORIDE) [Suspect]
     Route: 048
  5. OXYBUTYNIN [Suspect]
     Route: 048
  6. MIRTAZAPINE [Suspect]
     Route: 048
  7. LOVASTATIN [Suspect]
     Route: 048
  8. VALPROIC ACID [Suspect]
     Route: 048
  9. PARACETAMOL [Suspect]
     Route: 048
  10. GABAPENTIN [Suspect]
     Route: 048
  11. DULOXETINE (DULOXETINE) (DULOXETINE) [Suspect]
     Route: 048

REACTIONS (2)
  - Completed suicide [None]
  - Exposure via ingestion [None]
